FAERS Safety Report 8393596-9 (Version None)
Quarter: 2012Q2

REPORT INFORMATION
  Report Type: 
  Country: None (occurrence: None)
  Receive Date: 20120530
  Receipt Date: 20120525
  Transmission Date: 20120825
  Serious: Yes (Other)
  Sender: FDA-Public Use
  Company Number: US-AMGEN-USASP2012024496

PATIENT
  Age: 59 Year
  Sex: Female
  Weight: 78.005 kg

DRUGS (6)
  1. PROLIA [Suspect]
     Indication: OSTEOPOROSIS POSTMENOPAUSAL
     Dosage: 60 MG, Q6MO
     Route: 058
     Dates: start: 20111215, end: 20111215
  2. NEXIUM [Concomitant]
     Dosage: 40 MG, QD
     Route: 048
  3. REGLAN [Concomitant]
     Dosage: 10 MG, BID
     Route: 048
  4. ASPIRIN [Concomitant]
     Dosage: 81 MG, QD
     Route: 048
  5. CRESTOR [Concomitant]
     Dosage: 1 MG, QD
     Route: 048
  6. TOPROL-XL [Concomitant]
     Dosage: 50 MG, QD
     Route: 048

REACTIONS (7)
  - ASPIRATION [None]
  - DYSPHAGIA [None]
  - DRY THROAT [None]
  - COUGH [None]
  - MUSCULAR WEAKNESS [None]
  - TONGUE DISORDER [None]
  - DYSARTHRIA [None]
